FAERS Safety Report 16901642 (Version 4)
Quarter: 2020Q1

REPORT INFORMATION
  Report Type: Spontaneous
  Country: JP (occurrence: JP)
  Receive Date: 20191010
  Receipt Date: 20200131
  Transmission Date: 20200409
  Serious: Yes (Life-Threatening, Other)
  Sender: FDA-Public Use
  Company Number: JP-BRISTOL-MYERS SQUIBB COMPANY-BMS-2019-086120

PATIENT
  Age: 75 Year
  Sex: Female
  Weight: 39.4 kg

DRUGS (1)
  1. OPDIVO [Suspect]
     Active Substance: NIVOLUMAB
     Indication: HEAD AND NECK CANCER
     Dosage: 120 MILLIGRAM
     Route: 041
     Dates: start: 20180130

REACTIONS (4)
  - Biliary tract disorder [Unknown]
  - Liver disorder [Unknown]
  - Drug-induced liver injury [Recovering/Resolving]
  - Adrenal insufficiency [Recovering/Resolving]

NARRATIVE: CASE EVENT DATE: 20180319
